FAERS Safety Report 17589741 (Version 2)
Quarter: 2021Q2

REPORT INFORMATION
  Report Type: Spontaneous
  Country: US (occurrence: US)
  Receive Date: 20200327
  Receipt Date: 20210413
  Transmission Date: 20210716
  Serious: No
  Sender: FDA-Public Use
  Company Number: US-ALLERGAN-1947029US

PATIENT

DRUGS (1)
  1. LATISSE [Suspect]
     Active Substance: BIMATOPROST
     Indication: PRODUCT USED FOR UNKNOWN INDICATION
     Dosage: UNK GTT
     Route: 061

REACTIONS (4)
  - Skin discolouration [Unknown]
  - Blepharitis [Unknown]
  - Swelling of eyelid [Unknown]
  - Erythema of eyelid [Unknown]
